FAERS Safety Report 5253410-7 (Version None)
Quarter: 2007Q1

REPORT INFORMATION
  Report Type: 
  Country: None (occurrence: None)
  Receive Date: 20070301
  Receipt Date: 20070216
  Transmission Date: 20070707
  Serious: Yes (Hospitalization)
  Sender: FDA-Public Use
  Company Number: HU-ELI_LILLY_AND_COMPANY-HU200702001118

PATIENT
  Age: 59 Year
  Sex: Female

DRUGS (6)
  1. GEMZAR [Suspect]
     Indication: LUNG NEOPLASM MALIGNANT
     Dosage: 2000 MG, UNK
     Route: 042
     Dates: start: 20061214
  2. CISPLATIN [Concomitant]
     Indication: LUNG NEOPLASM MALIGNANT
     Dosage: 60 MG, UNK
     Route: 042
     Dates: start: 20061214
  3. THERAPEUTIC RADIOPHARMACEUTICALS [Concomitant]
     Dates: end: 20061215
  4. BETALOC [Concomitant]
  5. QUAMATEL [Concomitant]
  6. NUTRIDRINK [Concomitant]

REACTIONS (7)
  - ANAEMIA [None]
  - ASTHENIA [None]
  - DISEASE PROGRESSION [None]
  - HOSPITALISATION [None]
  - NAUSEA [None]
  - PERICARDIAL EFFUSION [None]
  - URTICARIA [None]
